FAERS Safety Report 23702150 (Version 1)
Quarter: 2024Q2

REPORT INFORMATION
  Report Type: Spontaneous
  Country: US (occurrence: US)
  Receive Date: 20240403
  Receipt Date: 20240403
  Transmission Date: 20240715
  Serious: Yes (Hospitalization)
  Sender: FDA-Public Use
  Company Number: US-PRESTIGE-202403-US-000849

PATIENT
  Age: 20 Year
  Sex: Male

DRUGS (1)
  1. DEBROX [Suspect]
     Active Substance: CARBAMIDE PEROXIDE
     Indication: Excessive cerumen production
     Dosage: TWO DROPS, USED ONCE.
     Route: 001

REACTIONS (3)
  - Tympanic membrane perforation [Unknown]
  - Wrong technique in product usage process [Unknown]
  - Underdose [Unknown]
